FAERS Safety Report 24727084 (Version 4)
Quarter: 2025Q1

REPORT INFORMATION
  Report Type: Spontaneous
  Country: GR (occurrence: GR)
  Receive Date: 20241212
  Receipt Date: 20250213
  Transmission Date: 20250409
  Serious: Yes (Other)
  Sender: PFIZER
  Company Number: GR-PFIZER INC-PV202400158646

PATIENT
  Age: 10 Year
  Sex: Male
  Weight: 25.5 kg

DRUGS (2)
  1. GENOTROPIN [Suspect]
     Active Substance: SOMATROPIN
     Indication: Growth hormone deficiency
     Route: 058
     Dates: start: 20240812
  2. GENOTROPIN [Suspect]
     Active Substance: SOMATROPIN
     Route: 058
     Dates: start: 20240817

REACTIONS (5)
  - Injury associated with device [Not Recovered/Not Resolved]
  - Needle issue [Not Recovered/Not Resolved]
  - Device breakage [Recovered/Resolved]
  - Drug dose omission by device [Recovered/Resolved]
  - Device use error [Unknown]

NARRATIVE: CASE EVENT DATE: 20241129
